FAERS Safety Report 15397612 (Version 1)
Quarter: 2018Q3

REPORT INFORMATION
  Report Type: Spontaneous
  Country: GB (occurrence: GB)
  Receive Date: 20180918
  Receipt Date: 20180918
  Transmission Date: 20181010
  Serious: Yes (Other)
  Sender: FDA-Public Use
  Company Number: PHHY2018GB098272

PATIENT
  Age: 73 Year
  Sex: Female
  Weight: 56 kg

DRUGS (6)
  1. PENTOSAN POLYSULFATE SODIUM [Concomitant]
     Active Substance: PENTOSAN POLYSULFATE SODIUM
     Indication: PRODUCT USED FOR UNKNOWN INDICATION
     Route: 065
  2. MEBEVERINE [Concomitant]
     Active Substance: MEBEVERINE
     Indication: PRODUCT USED FOR UNKNOWN INDICATION
     Route: 065
  3. LOPERAMIDE [Concomitant]
     Active Substance: LOPERAMIDE
     Indication: PRODUCT USED FOR UNKNOWN INDICATION
     Route: 065
  4. ONDANSETRON [Suspect]
     Active Substance: ONDANSETRON
     Indication: CROHN^S DISEASE
     Dosage: 1 DF, QD (1 UG/LITRE)
     Route: 048
     Dates: start: 20180629, end: 20180701
  5. AMITRIPTYLINE [Concomitant]
     Active Substance: AMITRIPTYLINE
     Indication: PRODUCT USED FOR UNKNOWN INDICATION
     Route: 065
  6. PENTASA [Concomitant]
     Active Substance: MESALAMINE
     Indication: PRODUCT USED FOR UNKNOWN INDICATION
     Route: 065

REACTIONS (10)
  - Constipation [Recovered/Resolved]
  - Restless legs syndrome [Recovering/Resolving]
  - Decreased appetite [Recovering/Resolving]
  - Malaise [Recovered/Resolved]
  - Anal incontinence [Not Recovered/Not Resolved]
  - Nausea [Recovering/Resolving]
  - Pain [Not Recovered/Not Resolved]
  - Rectal haemorrhage [Recovering/Resolving]
  - Asthenia [Unknown]
  - Rectal obstruction [Recovered/Resolved]
